FAERS Safety Report 8230832-3 (Version None)
Quarter: 2012Q1

REPORT INFORMATION
  Report Type: 
  Country: None (occurrence: None)
  Receive Date: 20120320
  Receipt Date: 20120305
  Transmission Date: 20120608
  Serious: Yes (Other)
  Sender: FDA-Public Use
  Company Number: JP-2012-13598

PATIENT
  Age: 69 Year
  Sex: Male

DRUGS (2)
  1. PLETAL [Suspect]
     Dosage: ORAL
     Route: 048
  2. ASPIRIN [Suspect]
     Dosage: ORAL
     Route: 048

REACTIONS (3)
  - HAEMOPTYSIS [None]
  - POSTOPERATIVE ADHESION [None]
  - NEOVASCULARISATION [None]
